FAERS Safety Report 12699234 (Version 2)
Quarter: 2016Q3

REPORT INFORMATION
  Report Type: Spontaneous
  Country: RU (occurrence: RU)
  Receive Date: 20160830
  Receipt Date: 20160907
  Transmission Date: 20161109
  Serious: Yes (Life-Threatening, Hospitalization, Other)
  Sender: FDA-Public Use
  Company Number: RU-ASTRAZENECA-2016SE90026

PATIENT
  Age: 61 Year
  Sex: Female
  Weight: 111 kg

DRUGS (9)
  1. METFORMIN [Concomitant]
     Active Substance: METFORMIN HYDROCHLORIDE
  2. INDAPAMIDE. [Concomitant]
     Active Substance: INDAPAMIDE
  3. ASPIRIN. [Concomitant]
     Active Substance: ASPIRIN
     Dates: start: 201605, end: 201605
  4. METOPROLOL. [Concomitant]
     Active Substance: METOPROLOL
  5. AMLODIPINE [Concomitant]
     Active Substance: AMLODIPINE BESYLATE
  6. BRILINTA [Suspect]
     Active Substance: TICAGRELOR
     Indication: CORONARY ARTERY BYPASS
     Route: 048
     Dates: start: 20160121
  7. VALSACOR [Concomitant]
     Active Substance: VALSARTAN
  8. ESPIRO [Concomitant]
  9. GALVUS [Concomitant]
     Active Substance: VILDAGLIPTIN

REACTIONS (6)
  - Off label use [Unknown]
  - Product use issue [Unknown]
  - Pancreatitis acute [Recovering/Resolving]
  - Epistaxis [Recovering/Resolving]
  - Small intestinal haemorrhage [Recovering/Resolving]
  - Medication error [Unknown]

NARRATIVE: CASE EVENT DATE: 201602
